FAERS Safety Report 11095233 (Version 1)
Quarter: 2015Q2

REPORT INFORMATION
  Report Type: Spontaneous
  Country: US (occurrence: US)
  Receive Date: 20150506
  Receipt Date: 20150506
  Transmission Date: 20150821
  Serious: No
  Sender: FDA-Public Use
  Company Number: US-SA-2014SA126331

PATIENT
  Age: 50 Year
  Sex: Male

DRUGS (4)
  1. APIDRA SOLOSTAR [Suspect]
     Active Substance: INSULIN GLULISINE
     Indication: TYPE 2 DIABETES MELLITUS
     Dosage: DOSE-VARIES WITH FOOD?FREQUENCY-WITH MEALS
     Route: 065
     Dates: start: 201404
  2. SOLOSTAR [Concomitant]
     Active Substance: DEVICE
     Indication: PAIN
  3. LANTUS [Suspect]
     Active Substance: INSULIN GLARGINE
     Route: 065
     Dates: start: 201403
  4. HYDROCODONE [Concomitant]
     Active Substance: HYDROCODONE

REACTIONS (2)
  - Product odour abnormal [Unknown]
  - Arthritis [Unknown]
